FAERS Safety Report 8435112-9 (Version None)
Quarter: 2012Q2

REPORT INFORMATION
  Report Type: 
  Country: None (occurrence: None)
  Receive Date: 20120614
  Receipt Date: 20120608
  Transmission Date: 20120825
  Serious: Yes (Other)
  Sender: FDA-Public Use
  Company Number: PHFR2012GB003368

PATIENT
  Age: 55 Year
  Sex: Female
  Weight: 70 kg

DRUGS (5)
  1. BEVACIZUMAB [Suspect]
     Dosage: 10 MG/KG ONCE IN TWO WEEKS
     Route: 042
     Dates: start: 20110901
  2. BEVACIZUMAB [Suspect]
     Indication: BREAST CANCER
     Dosage: 10 MG/KG ONCE IN TWO WEEKS
     Route: 042
     Dates: start: 20110901
  3. TAXOL [Suspect]
     Indication: BREAST CANCER
     Dosage: 90 MG/ME2 ON DAY 1,8, 15 OF 28 CYCLE
     Dates: start: 20110901
  4. ENOXAPARIN SODIUM [Concomitant]
  5. ZOLEDRONIC ACID [Suspect]
     Indication: BREAST CANCER
     Dosage: 4 MG ONCE IN 4 WEEKS
     Route: 042
     Dates: start: 20110701

REACTIONS (3)
  - CHEST PAIN [None]
  - PULMONARY EMBOLISM [None]
  - DYSPNOEA [None]
